FAERS Safety Report 6031662-3 (Version None)
Quarter: 2009Q1

REPORT INFORMATION
  Report Type: 
  Country: None (occurrence: None)
  Receive Date: 20090108
  Receipt Date: 20090105
  Transmission Date: 20090719
  Serious: Yes (Life-Threatening, Hospitalization)
  Sender: FDA-Public Use
  Company Number: PL-BAYER-200827525GPV

PATIENT
  Age: 56 Year
  Sex: Male
  Weight: 70 kg

DRUGS (11)
  1. SORAFENIB [Suspect]
     Indication: METASTATIC RENAL CELL CARCINOMA
     Route: 048
     Dates: end: 20070612
  2. SORAFENIB [Suspect]
     Dosage: TOTAL DAILY DOSE: 800 MG
     Route: 048
     Dates: start: 20070626
  3. NO-SPA [Concomitant]
     Indication: ABDOMINAL PAIN
     Route: 048
     Dates: start: 20060613
  4. NAPROXEN [Concomitant]
     Indication: MUSCULOSKELETAL PAIN
     Route: 048
     Dates: start: 20070306
  5. FUROSEMIDE [Concomitant]
     Indication: CARDIOVASCULAR INSUFFICIENCY
     Route: 048
     Dates: start: 20080614
  6. SPIRONOL [Concomitant]
     Indication: CARDIOVASCULAR INSUFFICIENCY
     Route: 048
     Dates: start: 20070613, end: 20070613
  7. SODIUM CHLORIDE [Concomitant]
     Indication: RENAL FAILURE
     Route: 042
     Dates: start: 20070613, end: 20070613
  8. AMINOPHYLINUM [Concomitant]
     Indication: RENAL FAILURE
     Route: 042
     Dates: start: 20070613, end: 20070613
  9. METOCARD [Concomitant]
     Indication: CARDIOVASCULAR INSUFFICIENCY
     Route: 048
     Dates: start: 20070913
  10. GLUCOSE [Concomitant]
     Indication: RENAL FAILURE
     Route: 042
     Dates: start: 20070614, end: 20070625
  11. MULTIELECTROLYTE FLUID [Concomitant]
     Indication: MINERAL SUPPLEMENTATION
     Route: 042
     Dates: start: 20070614, end: 20070626

REACTIONS (1)
  - CARDIAC TAMPONADE [None]
